FAERS Safety Report 9008180 (Version 3)
Quarter: 2014Q1

REPORT INFORMATION
  Report Type: Report from Study
  Country: US (occurrence: US)
  Receive Date: 20130111
  Receipt Date: 20140221
  Transmission Date: 20141002
  Serious: Yes (Hospitalization)
  Sender: FDA-Public Use
  Company Number: US-ASTELLAS-2013US000272

PATIENT
  Age: 73 Year
  Sex: Female
  Weight: 68 kg

DRUGS (5)
  1. ERLOTINIB TABLET [Suspect]
     Indication: BRONCHIOLOALVEOLAR CARCINOMA
     Dosage: 50 MG, UID/QD
     Route: 048
     Dates: start: 20110601
  2. ERLOTINIB TABLET [Suspect]
     Dosage: TOTLA DOSE OF 900MG
     Route: 048
     Dates: start: 20131206
  3. ERLOTINIB TABLET [Suspect]
     Dosage: 50 MG, UID/QD
     Route: 048
     Dates: start: 20131226
  4. BEVACIZUMAB [Suspect]
     Indication: BRONCHIOLOALVEOLAR CARCINOMA
     Dosage: 15 MG, Q3W
     Route: 042
     Dates: start: 20110601
  5. BEVACIZUMAB [Suspect]
     Dosage: 980 MG, TOTAL DOSE
     Route: 042
     Dates: start: 20131206

REACTIONS (5)
  - Incorrect dose administered [Unknown]
  - Hypoxia [Recovered/Resolved]
  - Cardiac failure [Recovered/Resolved]
  - Respiratory failure [Recovered/Resolved]
  - Dyspnoea [Recovered/Resolved]
